FAERS Safety Report 13167848 (Version 1)
Quarter: 2017Q1

REPORT INFORMATION
  Report Type: Spontaneous
  Country: IT (occurrence: IT)
  Receive Date: 20170131
  Receipt Date: 20170131
  Transmission Date: 20170428
  Serious: Yes (Other)
  Sender: FDA-Public Use
  Company Number: IT-VALIDUS PHARMACEUTICALS LLC-IT-2017VAL000134

PATIENT
  Age: 38 Year
  Sex: Female

DRUGS (4)
  1. METOPROLOL TARTRATE. [Suspect]
     Active Substance: METOPROLOL TARTRATE
     Indication: EJECTION FRACTION DECREASED
     Dosage: 100 MG, BID
     Route: 065
  2. BISOPROLOL [Suspect]
     Active Substance: BISOPROLOL
     Indication: EJECTION FRACTION DECREASED
     Dosage: 5 MG, QD
     Route: 065
  3. METOPROLOL TARTRATE. [Suspect]
     Active Substance: METOPROLOL TARTRATE
     Indication: PERIPARTUM CARDIOMYOPATHY
  4. BISOPROLOL [Suspect]
     Active Substance: BISOPROLOL
     Indication: PERIPARTUM CARDIOMYOPATHY

REACTIONS (2)
  - Therapeutic response decreased [Unknown]
  - Cardiac failure chronic [Unknown]
